FAERS Safety Report 15250564 (Version 1)
Quarter: 2018Q3

REPORT INFORMATION
  Report Type: Spontaneous
  Country: US (occurrence: US)
  Receive Date: 20180807
  Receipt Date: 20180807
  Transmission Date: 20181010
  Serious: No
  Sender: FDA-Public Use
  Company Number: US-GALDERMA-US18010363

PATIENT
  Age: 74 Year
  Sex: Male

DRUGS (6)
  1. SALICYLIC ACID. [Concomitant]
     Active Substance: SALICYLIC ACID
  2. DIFFERIN GEL [Suspect]
     Active Substance: ADAPALENE
     Indication: ROSACEA
     Dosage: 0.1%
     Route: 061
     Dates: start: 201802, end: 201804
  3. LYSINE [Concomitant]
     Active Substance: LYSINE
  4. AMOXICILLIN. [Concomitant]
     Active Substance: AMOXICILLIN
  5. CEPHALEXIN. [Concomitant]
     Active Substance: CEPHALEXIN
     Indication: ROSACEA
  6. MELATONIN [Concomitant]
     Active Substance: MELATONIN

REACTIONS (2)
  - Seborrhoea [Not Recovered/Not Resolved]
  - Product use in unapproved indication [Recovered/Resolved]

NARRATIVE: CASE EVENT DATE: 201802
